FAERS Safety Report 7769612-1 (Version None)
Quarter: 2011Q3

REPORT INFORMATION
  Report Type: 
  Country: None (occurrence: None)
  Receive Date: 20110922
  Receipt Date: 20110322
  Transmission Date: 20111222
  Serious: No
  Sender: FDA-Public Use
  Company Number: US-ASTRAZENECA-2011SE16306

PATIENT
  Age: 54 Year
  Sex: Female
  Weight: 52.2 kg

DRUGS (5)
  1. TOPAMAX [Concomitant]
     Indication: APPETITE DISORDER
  2. DEPLIN [Concomitant]
     Indication: BIPOLAR DISORDER
  3. LAMICTAL [Concomitant]
     Indication: BIPOLAR DISORDER
  4. SEROQUEL [Suspect]
     Indication: BIPOLAR DISORDER
     Dosage: 50 MG AM, 50MG AT NOON AND 375 MG AT NIGHT
     Route: 048
  5. GABAPENTIN [Concomitant]
     Indication: BIPOLAR DISORDER

REACTIONS (2)
  - MALAISE [None]
  - WRONG TECHNIQUE IN DRUG USAGE PROCESS [None]
